FAERS Safety Report 18453102 (Version 1)
Quarter: 2020Q4

REPORT INFORMATION
  Report Type: Report from Study
  Country: ES (occurrence: ES)
  Receive Date: 20201102
  Receipt Date: 20201102
  Transmission Date: 20210114
  Serious: Yes (Other)
  Sender: FDA-Public Use
  Company Number: ES-TEVA-2020-ES-1843361

PATIENT
  Age: 67 Year
  Sex: Female

DRUGS (9)
  1. TOCILIZUMAB (8289A) [Suspect]
     Active Substance: TOCILIZUMAB
     Dosage: 400 MG
     Route: 042
  2. PIPERACILINA + TAZOBACTAM [Suspect]
     Active Substance: PIPERACILLIN SODIUM\TAZOBACTAM SODIUM
     Route: 065
  3. HIDROXICLOROQUINA (2143A) [Suspect]
     Active Substance: HYDROXYCHLOROQUINE
     Indication: COVID-19
     Dosage: 400 MG / 12 HOURS THE FIRST DAY AND THEN 200 MG / 12 HOURS
     Route: 048
     Dates: start: 20200329, end: 20200403
  4. LOPINAVIR+RITONAVIR [Suspect]
     Active Substance: LOPINAVIR\RITONAVIR
     Indication: COVID-19
     Dosage: 400/100 MG EVERY 12 HOURS, UNIT DOSE: 1 DF
     Route: 048
     Dates: start: 20200329, end: 20200403
  5. CEFTRIAXONA (501A) [Suspect]
     Active Substance: CEFTRIAXONE
     Route: 065
  6. AZITROMICINA (7019A) [Suspect]
     Active Substance: AZITHROMYCIN
     Route: 065
  7. ANIDULAFUNGINA (8100A) [Suspect]
     Active Substance: ANIDULAFUNGIN
     Route: 065
  8. LINEZOLID (1279A) [Suspect]
     Active Substance: LINEZOLID
     Route: 065
  9. AZTREONAM (2340A) [Suspect]
     Active Substance: AZTREONAM
     Route: 065

REACTIONS (2)
  - Long QT syndrome [Recovered/Resolved]
  - Liver function test abnormal [Recovered/Resolved]

NARRATIVE: CASE EVENT DATE: 20200404
